FAERS Safety Report 12450831 (Version 1)
Quarter: 2016Q2

REPORT INFORMATION
  Report Type: Spontaneous
  Country: US (occurrence: US)
  Receive Date: 20160609
  Receipt Date: 20160609
  Transmission Date: 20160815
  Serious: Yes (Other)
  Sender: FDA-Public Use
  Company Number: US-B. BRAUN MEDICAL INC.-1053577

PATIENT
  Age: 59 Year
  Sex: Male

DRUGS (9)
  1. AMINO ACID NOS [Concomitant]
     Route: 042
     Dates: start: 20160304
  2. GLUCOSE [Concomitant]
     Active Substance: DEXTROSE
     Route: 042
  3. GLUCOSE [Concomitant]
     Active Substance: DEXTROSE
     Route: 042
  4. INTRALIPID [Concomitant]
     Active Substance: EGG PHOSPHOLIPIDS\GLYCERIN\SOYBEAN OIL
     Dates: start: 20160226, end: 20160229
  5. SODIUM CHLORIDE. [Concomitant]
     Active Substance: SODIUM CHLORIDE
     Route: 042
     Dates: start: 20160319
  6. NUTRILIPID I.V. FAT EMULSION [Suspect]
     Active Substance: SOYBEAN OIL
     Route: 042
     Dates: start: 20160304, end: 20160310
  7. NUTRILIPID I.V. FAT EMULSION [Suspect]
     Active Substance: SOYBEAN OIL
     Indication: PARENTERAL NUTRITION
     Route: 042
     Dates: start: 20160301, end: 20160303
  8. INTRALIPID [Concomitant]
     Active Substance: EGG PHOSPHOLIPIDS\GLYCERIN\SOYBEAN OIL
     Route: 042
     Dates: start: 20160406
  9. AMINO ACID NOS [Concomitant]
     Route: 042
     Dates: end: 20160303

REACTIONS (5)
  - Liver function test abnormal [None]
  - Blood bilirubin increased [None]
  - Aspartate aminotransferase increased [None]
  - Blood alkaline phosphatase increased [None]
  - Bilirubin conjugated increased [None]
